FAERS Safety Report 5381648-7 (Version None)
Quarter: 2007Q2

REPORT INFORMATION
  Report Type: 
  Country: None (occurrence: None)
  Receive Date: 20070629
  Receipt Date: 20060728
  Transmission Date: 20071010
  Serious: Yes (Hospitalization, Other)
  Sender: FDA-Public Use
  Company Number: 2006093135

PATIENT
  Age: 41 Year
  Sex: Male
  Weight: 77.1115 kg

DRUGS (2)
  1. ZOLOFT [Suspect]
     Indication: PANCREATITIS
     Dosage: 50 MG (50 MG, 1 IN 1 D)
     Dates: start: 20051201
  2. CHOLESTEROL - AND TRIGLYCERIDE REDUCERS (CHOLESTEROL - AND TRIGLYCERID [Concomitant]

REACTIONS (1)
  - GYNAECOMASTIA [None]
